FAERS Safety Report 7712710-9 (Version None)
Quarter: 2011Q3

REPORT INFORMATION
  Report Type: 
  Country: None (occurrence: None)
  Receive Date: 20110826
  Receipt Date: 20110815
  Transmission Date: 20111222
  Serious: Yes (Hospitalization)
  Sender: FDA-Public Use
  Company Number: US-GLAXOSMITHKLINE-A0833719A

PATIENT
  Age: 64 Year
  Sex: Male
  Weight: 106.8 kg

DRUGS (6)
  1. LISINOPRIL [Concomitant]
  2. LIPITOR [Concomitant]
  3. NORVASC [Concomitant]
  4. GLIPIZIDE [Concomitant]
  5. AVANDIA [Suspect]
     Indication: DIABETES MELLITUS
     Dosage: 2MG PER DAY
     Route: 048
     Dates: start: 19990501
  6. GLUCOPHAGE [Concomitant]

REACTIONS (5)
  - HYPOAESTHESIA [None]
  - CARDIOVASCULAR DISORDER [None]
  - CARDIAC FAILURE CONGESTIVE [None]
  - CEREBROVASCULAR ACCIDENT [None]
  - GAIT DISTURBANCE [None]
